FAERS Safety Report 13522249 (Version 3)
Quarter: 2017Q4

REPORT INFORMATION
  Report Type: Spontaneous
  Country: US (occurrence: US)
  Receive Date: 20170508
  Receipt Date: 20171002
  Transmission Date: 20180320
  Serious: No
  Sender: FDA-Public Use
  Company Number: US-GLAXOSMITHKLINE-US2017064783

PATIENT
  Sex: Female

DRUGS (3)
  1. ADVAIR DISKUS [Suspect]
     Active Substance: FLUTICASONE PROPIONATE\SALMETEROL XINAFOATE
     Indication: ASTHMA
     Dosage: 1 PUFF(S), BID
     Route: 055
  2. ADVAIR DISKUS [Suspect]
     Active Substance: FLUTICASONE PROPIONATE\SALMETEROL XINAFOATE
     Dosage: 1 PUFF(S), QD
  3. XANAX [Concomitant]
     Active Substance: ALPRAZOLAM

REACTIONS (8)
  - Intentional underdose [Unknown]
  - Nasal dryness [Unknown]
  - Condition aggravated [Unknown]
  - Dysphonia [Unknown]
  - Nasal ulcer [Unknown]
  - Epistaxis [Unknown]
  - Intentional product misuse [Unknown]
  - Nasal discomfort [Recovering/Resolving]
